FAERS Safety Report 18384343 (Version 1)
Quarter: 2020Q4

REPORT INFORMATION
  Report Type: Spontaneous
  Country: SE (occurrence: SE)
  Receive Date: 20201014
  Receipt Date: 20201014
  Transmission Date: 20210114
  Serious: Yes (Other)
  Sender: FDA-Public Use
  Company Number: SE-PURDUE-USA-2020-0170860

PATIENT
  Age: 53 Year
  Sex: Female

DRUGS (1)
  1. NORSPAN [Suspect]
     Active Substance: BUPRENORPHINE
     Indication: PAIN
     Dosage: UNK
     Route: 065

REACTIONS (3)
  - Application site pruritus [Unknown]
  - Skin reaction [Unknown]
  - Application site erythema [Unknown]

NARRATIVE: CASE EVENT DATE: 2020
